FAERS Safety Report 22320828 (Version 1)
Quarter: 2023Q2

REPORT INFORMATION
  Report Type: Spontaneous
  Country: US (occurrence: None)
  Receive Date: 20230512
  Receipt Date: 20230512
  Transmission Date: 20230721
  Serious: No
  Sender: FDA-Public Use
  Company Number: None

PATIENT
  Sex: Female

DRUGS (1)
  1. STELARA [Suspect]
     Active Substance: USTEKINUMAB
     Indication: Psoriasis
     Dosage: OTHER FREQUENCY : EVERY 12 WEEKS;?
     Dates: start: 20220621

REACTIONS (9)
  - Pruritus [None]
  - Pain [None]
  - Burning sensation [None]
  - Ear pruritus [None]
  - Pruritus [None]
  - Dry skin [None]
  - Skin exfoliation [None]
  - Skin fissures [None]
  - Drug ineffective [None]
